FAERS Safety Report 19500997 (Version 1)
Quarter: 2021Q3

REPORT INFORMATION
  Report Type: Spontaneous
  Country: GB (occurrence: GB)
  Receive Date: 20210707
  Receipt Date: 20210707
  Transmission Date: 20211014
  Serious: Yes (Life-Threatening, Other)
  Sender: FDA-Public Use
  Company Number: GB-BIO PRODUCTS LABORATORY LTD-2113525

PATIENT
  Age: 36 Year
  Sex: Female
  Weight: 72 kg

DRUGS (2)
  1. HUMAN NORMAL IMMUNOGLOBULIN [Suspect]
     Active Substance: HUMAN IMMUNOGLOBULIN G
  2. ASTRAZENECA COVID?19 VACCINE [Suspect]
     Active Substance: AZD-1222

REACTIONS (6)
  - Chest discomfort [Unknown]
  - Thrombosis [Recovering/Resolving]
  - Activated partial thromboplastin time prolonged [Unknown]
  - Thrombocytosis [Unknown]
  - Neutrophilia [Unknown]
  - Vomiting [Unknown]

NARRATIVE: CASE EVENT DATE: 20210611
